FAERS Safety Report 25371400 (Version 1)
Quarter: 2025Q2

REPORT INFORMATION
  Report Type: Report from Study
  Country: TR (occurrence: TR)
  Receive Date: 20250529
  Receipt Date: 20250529
  Transmission Date: 20250717
  Serious: Yes (Death)
  Sender: ROCHE
  Company Number: TR-ROCHE-10000292469

PATIENT

DRUGS (1)
  1. MYCOPHENOLATE MOFETIL [Suspect]
     Active Substance: MYCOPHENOLATE MOFETIL
     Indication: Prophylaxis against graft versus host disease
     Route: 048

REACTIONS (5)
  - Off label use [Unknown]
  - Sepsis [Fatal]
  - Fungal infection [Fatal]
  - Bacterial infection [Fatal]
  - Viral infection [Fatal]
